FAERS Safety Report 13290620 (Version 2)
Quarter: 2017Q2

REPORT INFORMATION
  Report Type: Spontaneous
  Country: US (occurrence: US)
  Receive Date: 20170302
  Receipt Date: 20170429
  Transmission Date: 20170830
  Serious: No
  Sender: FDA-Public Use
  Company Number: US-TEVA-742575ACC

PATIENT
  Age: 46 Year
  Sex: Female

DRUGS (7)
  1. TYLENOL [Concomitant]
     Active Substance: ACETAMINOPHEN
  2. SUCRALFATE. [Concomitant]
     Active Substance: SUCRALFATE
  3. TUMS [Concomitant]
     Active Substance: CALCIUM CARBONATE
  4. DOXYCYCLINE. [Concomitant]
     Active Substance: DOXYCYCLINE
  5. LORAZEPAM. [Concomitant]
     Active Substance: LORAZEPAM
  6. COPAXONE [Suspect]
     Active Substance: GLATIRAMER ACETATE
     Indication: MULTIPLE SCLEROSIS
     Route: 058
     Dates: start: 20090925
  7. PROBIOTICA [Concomitant]
     Active Substance: PROBIOTICS NOS

REACTIONS (2)
  - Injection site erythema [Not Recovered/Not Resolved]
  - Memory impairment [Unknown]

NARRATIVE: CASE EVENT DATE: 201701
